FAERS Safety Report 6118283-9 (Version None)
Quarter: 2009Q1

REPORT INFORMATION
  Report Type: 
  Country: None (occurrence: None)
  Receive Date: 20090314
  Receipt Date: 20090212
  Transmission Date: 20090719
  Serious: No
  Sender: FDA-Public Use
  Company Number: US-ABBOTT-09P-163-0557241-00

PATIENT
  Sex: Female
  Weight: 108.96 kg

DRUGS (4)
  1. HUMIRA [Suspect]
     Indication: RHEUMATOID ARTHRITIS
     Dates: start: 20071101, end: 20080501
  2. HUMIRA [Suspect]
     Dates: start: 20081001
  3. METHOTREXATE [Concomitant]
     Indication: SWELLING
     Dates: start: 20070101, end: 20080501
  4. METHOTREXATE [Concomitant]
     Dosage: FOUR TABLETS
     Dates: start: 20090212

REACTIONS (2)
  - GAIT DISTURBANCE [None]
  - RHEUMATOID ARTHRITIS [None]
